FAERS Safety Report 17840948 (Version 1)
Quarter: 2020Q2

REPORT INFORMATION
  Report Type: Spontaneous
  Country: CA (occurrence: CA)
  Receive Date: 20200529
  Receipt Date: 20200529
  Transmission Date: 20200714
  Serious: Yes (Life-Threatening, Hospitalization)
  Sender: FDA-Public Use
  Company Number: CA-TEVA-2020-CA-1241497

PATIENT
  Age: 63 Year
  Sex: Female
  Weight: 88 kg

DRUGS (9)
  1. RIVOTRIL [Concomitant]
     Active Substance: CLONAZEPAM
  2. AVAMYS [Concomitant]
     Active Substance: FLUTICASONE FUROATE
  3. ERGOCALCIFEROL. [Concomitant]
     Active Substance: ERGOCALCIFEROL
  4. ZYPREXA [Concomitant]
     Active Substance: OLANZAPINE
  5. NEUPOGEN [Concomitant]
     Active Substance: FILGRASTIM
  6. PANTOLOC[PANTOPRAZOLE] [Concomitant]
  7. PACLITAXEL. [Suspect]
     Active Substance: PACLITAXEL
     Indication: BREAST NEOPLASM
     Route: 065
  8. SERTRALINE HYDROCHLORIDE. [Concomitant]
     Active Substance: SERTRALINE HYDROCHLORIDE
  9. BETACAROTENE/BIOTIN/CALCIUMCARBONATE/CALCIUM DPANTOTHENATE/CHROMIC CHL [Concomitant]

REACTIONS (7)
  - Hyperhidrosis [Recovered/Resolved]
  - Immediate post-injection reaction [Recovered/Resolved]
  - Lip swelling [Recovered/Resolved]
  - Malaise [Recovered/Resolved]
  - Sensation of foreign body [Recovered/Resolved]
  - Dyspnoea [Recovered/Resolved]
  - Erythema [Recovered/Resolved]
